FAERS Safety Report 16673329 (Version 1)
Quarter: 2019Q3

REPORT INFORMATION
  Report Type: Report from Study
  Country: US (occurrence: US)
  Receive Date: 20190806
  Receipt Date: 20190806
  Transmission Date: 20191004
  Serious: Yes (Life-Threatening)
  Sender: FDA-Public Use
  Company Number: PHEH2019US032265

PATIENT
  Age: 51 Year
  Sex: Male

DRUGS (2)
  1. DK-50 [Concomitant]
     Indication: PRODUCT USED FOR UNKNOWN INDICATION
     Route: 005
  2. MYCOPHENOLATE [Suspect]
     Active Substance: MYCOPHENOLIC ACID
     Indication: IGA NEPHROPATHY
     Dosage: UNK
     Route: 065
     Dates: start: 2003

REACTIONS (1)
  - Neoplasm malignant [Recovered/Resolved]
